FAERS Safety Report 17429795 (Version 2)
Quarter: 2020Q1

REPORT INFORMATION
  Report Type: Spontaneous
  Country: US (occurrence: US)
  Receive Date: 20200218
  Receipt Date: 20200304
  Transmission Date: 20200409
  Serious: No
  Sender: FDA-Public Use
  Company Number: US-PFIZER INC-2018007037

PATIENT
  Age: 60 Year
  Sex: Male
  Weight: 99.77 kg

DRUGS (2)
  1. GENOTROPIN MQ [Suspect]
     Active Substance: SOMATROPIN
     Indication: HYPOPITUITARISM
     Dosage: 1 MG, DAILY  (ADMINISTERED INJECTION DAILY IN THE BELLY)
     Route: 058
     Dates: start: 2006
  2. GENOTROPIN MQ [Suspect]
     Active Substance: SOMATROPIN
     Dosage: 1 MG, 1X/DAY
     Route: 058
     Dates: start: 2009

REACTIONS (1)
  - Feeling abnormal [Unknown]
